FAERS Safety Report 21732493 (Version 1)
Quarter: 2022Q4

REPORT INFORMATION
  Report Type: Spontaneous
  Country: GB (occurrence: GB)
  Receive Date: 20221215
  Receipt Date: 20221215
  Transmission Date: 20230112
  Serious: Yes (Other)
  Sender: FDA-Public Use
  Company Number: GB-Accord-290916

PATIENT
  Sex: Female

DRUGS (7)
  1. CARBOPLATIN [Suspect]
     Active Substance: CARBOPLATIN
     Indication: Cervix carcinoma
  2. PACLITAXEL [Suspect]
     Active Substance: PACLITAXEL
     Indication: Cervix carcinoma
  3. BEVACIZUMAB [Suspect]
     Active Substance: BEVACIZUMAB
     Indication: Cervix carcinoma
  4. GABAPENTIN [Concomitant]
     Active Substance: GABAPENTIN
     Dosage: 3 TIMES A DAY
  5. NEFOPAM [Concomitant]
     Active Substance: NEFOPAM
     Dosage: TDS
  6. MST [Concomitant]
     Dosage: SLOW RELEASE BD
  7. ACETAMINOPHEN [Concomitant]
     Active Substance: ACETAMINOPHEN
     Dosage: BREAKTHROUGH

REACTIONS (2)
  - Cervix carcinoma recurrent [Unknown]
  - Female genital tract fistula [Unknown]

NARRATIVE: CASE EVENT DATE: 20210601
